APPROVED DRUG PRODUCT: ILOPERIDONE
Active Ingredient: ILOPERIDONE
Strength: 2MG
Dosage Form/Route: TABLET;ORAL
Application: A207231 | Product #002
Applicant: INVENTIA HEALTHCARE LTD
Approved: Nov 28, 2016 | RLD: No | RS: No | Type: DISCN